FAERS Safety Report 6327555-4 (Version None)
Quarter: 2009Q3

REPORT INFORMATION
  Report Type: 
  Country: None (occurrence: None)
  Receive Date: 20090825
  Receipt Date: 20090812
  Transmission Date: 20100115
  Serious: Yes (Life-Threatening, Hospitalization)
  Sender: FDA-Public Use
  Company Number: NL-ELI_LILLY_AND_COMPANY-NL200906005563

PATIENT
  Sex: Male
  Weight: 94 kg

DRUGS (5)
  1. STRATTERA [Suspect]
     Indication: ATTENTION DEFICIT/HYPERACTIVITY DISORDER
     Dosage: UNK, UNKNOWN
     Route: 065
     Dates: end: 20071001
  2. STRATTERA [Suspect]
     Dosage: 80 MG, DAILY (1/D)
     Route: 065
     Dates: start: 20071001
  3. STRATTERA [Suspect]
     Dosage: 40 MG, DAILY (1/D)
     Route: 065
     Dates: end: 20090508
  4. STRATTERA [Suspect]
     Dosage: UNK, UNKNOWN
     Route: 065
     Dates: start: 20090501
  5. AERIUS [Concomitant]
     Dosage: 5 MG, UNKNOWN
     Route: 065

REACTIONS (1)
  - MYOCARDITIS [None]
